FAERS Safety Report 5393694-8 (Version None)
Quarter: 2007Q3

REPORT INFORMATION
  Report Type: 
  Country: None (occurrence: None)
  Receive Date: 20070723
  Receipt Date: 20070715
  Transmission Date: 20080115
  Serious: Yes (Hospitalization, Other)
  Sender: FDA-Public Use
  Company Number: US-AMGEN-STX232634

PATIENT
  Sex: Female

DRUGS (10)
  1. ENBREL [Suspect]
     Indication: RHEUMATOID ARTHRITIS
     Route: 058
     Dates: start: 19980101
  2. ENBREL [Suspect]
     Indication: OSTEOARTHRITIS
  3. METHOTREXATE [Concomitant]
     Route: 048
     Dates: start: 19960101
  4. LIPITOR [Concomitant]
  5. ACTONEL [Concomitant]
     Route: 048
  6. FOLIC ACID [Concomitant]
     Route: 048
  7. PLAVIX [Concomitant]
     Route: 048
  8. ATENOLOL [Concomitant]
     Route: 048
  9. ASPIRIN [Concomitant]
  10. CALCIUM WITH VITAMIN D [Concomitant]
     Route: 048

REACTIONS (3)
  - ARTERIOSCLEROSIS [None]
  - CHEST PAIN [None]
  - PAIN IN JAW [None]
